FAERS Safety Report 8263578-6 (Version None)
Quarter: 2012Q2

REPORT INFORMATION
  Report Type: 
  Country: None (occurrence: None)
  Receive Date: 20120405
  Receipt Date: 20120329
  Transmission Date: 20120825
  Serious: Yes (Other)
  Sender: FDA-Public Use
  Company Number: CA-ABBOTT-11P-028-0867938-00

PATIENT
  Sex: Male
  Weight: 59.928 kg

DRUGS (18)
  1. JAMP-ASA [Concomitant]
     Indication: CARDIAC DISORDER
  2. NAPROXEN [Concomitant]
     Indication: MUSCULOSKELETAL PAIN
  3. FLOMAX [Suspect]
     Indication: POLLAKIURIA
     Dates: start: 20120201
  4. DOCUSATE SODIUM [Concomitant]
     Indication: GASTROINTESTINAL DISORDER
  5. PANTOPRAZOLE [Concomitant]
     Indication: PRODUCT USED FOR UNKNOWN INDICATION
  6. TIAZAC [Concomitant]
     Indication: PRODUCT USED FOR UNKNOWN INDICATION
  7. RATIO-FENTANYL [Concomitant]
     Indication: CARDIAC DISORDER
     Dosage: 1 PATCH EVERY 3 DAYS
  8. SEROQUEL [Concomitant]
     Indication: PRODUCT USED FOR UNKNOWN INDICATION
  9. PRO-QUETIAPINE [Concomitant]
     Indication: SLEEP DISORDER
     Dosage: 1-2 TABLETS AS REQUIRED OVER NIGHT
  10. LUPRON DEPOT [Suspect]
     Indication: PROSTATE CANCER
     Dates: start: 20100920
  11. CENTRUM REG [Concomitant]
     Indication: PRODUCT USED FOR UNKNOWN INDICATION
  12. RATIO-SALBUTAMOL [Concomitant]
     Indication: RESPIRATORY DISORDER
     Dosage: 12.5 MG / 2.5 ML QID
  13. VITAMIN B1 TAB [Concomitant]
     Indication: PRODUCT USED FOR UNKNOWN INDICATION
  14. APO-SALVENT CFC [Concomitant]
     Indication: RESPIRATORY DISORDER
  15. ACETAMINOPHEN [Concomitant]
     Indication: CARDIAC DISORDER
  16. CALCIUM +VIT D [Concomitant]
     Indication: PRODUCT USED FOR UNKNOWN INDICATION
     Dosage: DAILY DOSE: 1000MG/800IU UNIT DOSE: 500MG/400IU
  17. PLAVIX [Concomitant]
     Indication: CEREBROVASCULAR ACCIDENT
  18. PMS SENNOSIDE [Concomitant]
     Indication: GASTROINTESTINAL DISORDER
     Dosage: AT BEDTIME

REACTIONS (8)
  - AGITATION [None]
  - ASTHENIA [None]
  - ABNORMAL BEHAVIOUR [None]
  - POLLAKIURIA [None]
  - CEREBROVASCULAR ACCIDENT [None]
  - LUNG CARCINOMA CELL TYPE UNSPECIFIED RECURRENT [None]
  - ANXIETY [None]
  - INSOMNIA [None]
